FAERS Safety Report 18017633 (Version 4)
Quarter: 2021Q2

REPORT INFORMATION
  Report Type: Spontaneous
  Country: US (occurrence: US)
  Receive Date: 20200713
  Receipt Date: 20210622
  Transmission Date: 20210717
  Serious: Yes (Hospitalization, Other)
  Sender: FDA-Public Use
  Company Number: US-GILEAD-2020-0479778

PATIENT
  Age: 64 Year
  Sex: Female
  Weight: 63.27 kg

DRUGS (29)
  1. ATORVASTATIN [Concomitant]
     Active Substance: ATORVASTATIN
  2. VALACYCLOVIR HCL [Concomitant]
     Active Substance: VALACYCLOVIR HYDROCHLORIDE
  3. TERBINAFINE. [Concomitant]
     Active Substance: TERBINAFINE
  4. VITAMIN D NOS [Concomitant]
     Active Substance: VITAMIN D NOS
  5. ONDANSETRON [Concomitant]
     Active Substance: ONDANSETRON
  6. INDINAVIR [Concomitant]
     Active Substance: INDINAVIR
  7. INVIRASE [Concomitant]
     Active Substance: SAQUINAVIR MESYLATE
  8. AZITHROMYCIN ANHYDROUS. [Concomitant]
     Active Substance: AZITHROMYCIN ANHYDROUS
  9. FLUOXETINE [Concomitant]
     Active Substance: FLUOXETINE HYDROCHLORIDE
  10. NYSTOP [Concomitant]
     Active Substance: NYSTATIN
  11. TRETINOIN. [Concomitant]
     Active Substance: TRETINOIN
  12. TRUVADA [Suspect]
     Active Substance: EMTRICITABINE\TENOFOVIR DISOPROXIL FUMARATE
     Indication: HIV INFECTION
     Dosage: UNK
     Route: 048
     Dates: start: 200406, end: 201903
  13. EPIVIR [Concomitant]
     Active Substance: LAMIVUDINE
  14. SUPREP BOWEL PREP [Concomitant]
     Active Substance: MAGNESIUM SULFATE\POTASSIUM SULFATE\SODIUM SULFATE
  15. DESCOVY [Concomitant]
     Active Substance: EMTRICITABINE\TENOFOVIR ALAFENAMIDE FUMARATE
  16. PREZCOBIX [Concomitant]
     Active Substance: COBICISTAT\DARUNAVIR ETHANOLATE
  17. TRUVADA [Suspect]
     Active Substance: EMTRICITABINE\TENOFOVIR DISOPROXIL FUMARATE
     Dosage: UNK
     Route: 048
     Dates: start: 2010, end: 201909
  18. LAMIVUDINE. [Concomitant]
     Active Substance: LAMIVUDINE
  19. CLOTRIMAZOLE / BETAMETH [Concomitant]
     Active Substance: BETAMETHASONE DIPROPIONATE\CLOTRIMAZOLE
  20. LIPITOR [Concomitant]
     Active Substance: ATORVASTATIN CALCIUM
  21. DIDANOSINE. [Concomitant]
     Active Substance: DIDANOSINE
  22. TRAMADOL. [Concomitant]
     Active Substance: TRAMADOL
  23. VIREAD [Suspect]
     Active Substance: TENOFOVIR DISOPROXIL FUMARATE
     Indication: HIV INFECTION
     Dosage: UNK
     Route: 048
     Dates: start: 2004, end: 2019
  24. ACETAMINOPHEN. [Concomitant]
     Active Substance: ACETAMINOPHEN
  25. NORVIR [Concomitant]
     Active Substance: RITONAVIR
  26. VIDEX [Concomitant]
     Active Substance: DIDANOSINE
  27. FINASTERIDE. [Concomitant]
     Active Substance: FINASTERIDE
  28. DESONIDE. [Concomitant]
     Active Substance: DESONIDE
  29. MUPIROCIN. [Concomitant]
     Active Substance: MUPIROCIN

REACTIONS (12)
  - Emotional distress [Unknown]
  - Chronic kidney disease [Unknown]
  - Osteonecrosis [Unknown]
  - Fanconi syndrome acquired [Not Recovered/Not Resolved]
  - Renal failure [Unknown]
  - Tooth extraction [Unknown]
  - Pain [Unknown]
  - Osteoporosis [Not Recovered/Not Resolved]
  - Bone loss [Unknown]
  - Bone density decreased [Unknown]
  - Fracture [Unknown]
  - Depression [Unknown]

NARRATIVE: CASE EVENT DATE: 2019
